FAERS Safety Report 4785486-5 (Version None)
Quarter: 2005Q3

REPORT INFORMATION
  Report Type: 
  Country: None (occurrence: None)
  Receive Date: 20050929
  Receipt Date: 20050916
  Transmission Date: 20060218
  Serious: Yes (Other)
  Sender: FDA-Public Use
  Company Number: 2005131240

PATIENT
  Age: 70 Year
  Sex: Female

DRUGS (6)
  1. ZITHROMAX [Suspect]
     Indication: NASAL CONGESTION
     Dosage: (ONCE), ORAL
     Route: 048
     Dates: start: 20050913, end: 20050913
  2. ZITHROMAX [Suspect]
     Indication: SEASONAL ALLERGY
     Dosage: (ONCE), ORAL
     Route: 048
     Dates: start: 20050913, end: 20050913
  3. INSULIN [Concomitant]
  4. ^LACETAPRO^ (ALL OTHER THERAPEUTIC PRODUCTS) [Concomitant]
  5. VITAMINS (VITAMINS) [Concomitant]
  6. ASPIRIN [Concomitant]

REACTIONS (1)
  - BLOOD GLUCOSE INCREASED [None]
